FAERS Safety Report 16763528 (Version 3)
Quarter: 2019Q4

REPORT INFORMATION
  Report Type: Spontaneous
  Country: PR (occurrence: PR)
  Receive Date: 20190902
  Receipt Date: 20191106
  Transmission Date: 20200122
  Serious: Yes (Other)
  Sender: FDA-Public Use
  Company Number: PR-PFIZER INC-2019373645

PATIENT
  Age: 85 Year
  Sex: Female
  Weight: 68.27 kg

DRUGS (3)
  1. IBRANCE [Suspect]
     Active Substance: PALBOCICLIB
     Dosage: UNK
  2. IBRANCE [Suspect]
     Active Substance: PALBOCICLIB
     Indication: BREAST CANCER FEMALE
     Dosage: 100 MG, CYCLIC, (1CAP DAILY/21 DAYS)
     Route: 048
     Dates: start: 20181218
  3. IBRANCE [Suspect]
     Active Substance: PALBOCICLIB
     Dosage: UNK

REACTIONS (12)
  - Decreased appetite [Unknown]
  - White blood cell count decreased [Unknown]
  - Tumour marker increased [Unknown]
  - Onychoclasis [Unknown]
  - Fatigue [Unknown]
  - Neoplasm progression [Unknown]
  - Full blood count decreased [Unknown]
  - Asthenia [Unknown]
  - Constipation [Unknown]
  - Skin exfoliation [Unknown]
  - Flushing [Unknown]
  - Hypoaesthesia [Unknown]

NARRATIVE: CASE EVENT DATE: 20190827
